FAERS Safety Report 8553681-5 (Version None)
Quarter: 2012Q3

REPORT INFORMATION
  Report Type: 
  Country: None (occurrence: None)
  Receive Date: 20120731
  Receipt Date: 20120723
  Transmission Date: 20120928
  Serious: Yes (Hospitalization)
  Sender: FDA-Public Use
  Company Number: US-009507513-1207USA009752

PATIENT

DRUGS (33)
  1. CYMBALTA [Concomitant]
     Route: 048
  2. VITAMINS (UNSPECIFIED) [Concomitant]
  3. LISINOPRIL [Concomitant]
     Route: 048
  4. AMBIEN [Concomitant]
     Route: 048
  5. CRESTOR [Suspect]
     Dosage: UNK
     Route: 048
  6. MIRALAX [Concomitant]
     Dosage: 1 PACK, QD
     Route: 048
  7. THERAGRAN TABLETS ADVANCED FORMULA [Concomitant]
  8. ZOCOR [Concomitant]
     Route: 048
  9. LOTENSIN [Concomitant]
  10. METAMUCIL-2 [Concomitant]
     Route: 048
  11. PRILOSEC [Concomitant]
     Route: 048
  12. COLACE [Concomitant]
     Route: 048
  13. FERROUS SULFATE TAB [Concomitant]
     Route: 048
  14. PREMARIN [Concomitant]
     Route: 048
  15. CELECOXIB [Suspect]
  16. NAPROXEN [Suspect]
  17. IBUPROFEN [Suspect]
  18. PLACEBO [Suspect]
  19. ALLEGRA [Concomitant]
     Route: 048
  20. CLONIDINE [Concomitant]
  21. IRON (UNSPECIFIED) [Concomitant]
  22. PSYLLIUM HUSK [Concomitant]
  23. BUSPAR [Concomitant]
     Route: 048
  24. CATAPRES [Concomitant]
     Route: 048
  25. FLEXERIL [Concomitant]
     Route: 048
  26. PROTONIX [Concomitant]
  27. NEXIUM [Concomitant]
  28. ZOCOR [Suspect]
     Route: 048
  29. LOTENSIN HCT [Concomitant]
     Route: 048
  30. DILANTIN [Concomitant]
     Route: 048
  31. PHOSLO [Concomitant]
  32. HYDROCHLOROTHIAZIDE [Concomitant]
     Route: 048
  33. DOCUSATE SODIUM [Concomitant]

REACTIONS (3)
  - TOXIC ENCEPHALOPATHY [None]
  - RENAL FAILURE [None]
  - HEPATIC FAILURE [None]
